FAERS Safety Report 5633937-6 (Version None)
Quarter: 2008Q1

REPORT INFORMATION
  Report Type: 
  Country: None (occurrence: None)
  Receive Date: 20080221
  Receipt Date: 20080207
  Transmission Date: 20080703
  Serious: Yes (Other)
  Sender: FDA-Public Use
  Company Number: CH-GENENTECH-255992

PATIENT
  Sex: Female
  Weight: 54 kg

DRUGS (8)
  1. BEVACIZUMAB [Suspect]
     Indication: BREAST CANCER METASTATIC
     Dosage: 900 MG, 3/WEEK
     Route: 042
     Dates: start: 20070615
  2. TAXOTERE [Suspect]
     Indication: BREAST CANCER METASTATIC
     Dosage: 40 MG, 1/WEEK
     Route: 042
     Dates: start: 20070615
  3. CAPECITABINE [Suspect]
     Indication: BREAST CANCER METASTATIC
     Dosage: 4 G, QD
     Route: 048
     Dates: start: 20070615
  4. BENADON [Concomitant]
     Indication: DRUG USE FOR UNKNOWN INDICATION
     Dates: start: 20070615
  5. CHLORPROMAZINE [Concomitant]
     Indication: DRUG USE FOR UNKNOWN INDICATION
     Dates: start: 20070615
  6. DEROXAT [Concomitant]
     Indication: DRUG USE FOR UNKNOWN INDICATION
     Dates: start: 20070615
  7. PANTOZOL [Concomitant]
     Indication: DRUG USE FOR UNKNOWN INDICATION
     Dates: start: 20070615
  8. PASPERTIN [Concomitant]
     Indication: DRUG USE FOR UNKNOWN INDICATION
     Dosage: UNK, UNK
     Dates: start: 20070615

REACTIONS (1)
  - HAEMOGLOBIN DECREASED [None]
